FAERS Safety Report 8194761-6 (Version None)
Quarter: 2012Q1

REPORT INFORMATION
  Report Type: 
  Country: None (occurrence: None)
  Receive Date: 20120308
  Receipt Date: 20110309
  Transmission Date: 20120608
  Serious: No
  Sender: FDA-Public Use
  Company Number: US-GLAXOSMITHKLINE-A0917321A

PATIENT
  Age: 45 Year
  Sex: Female

DRUGS (2)
  1. NICORETTE [Suspect]
     Indication: EX-TOBACCO USER
     Route: 002
     Dates: start: 20110301, end: 20110308
  2. NICORETTE [Suspect]
     Indication: EX-TOBACCO USER
     Route: 002
     Dates: start: 20110201, end: 20110308

REACTIONS (10)
  - ERUCTATION [None]
  - GASTROOESOPHAGEAL REFLUX DISEASE [None]
  - MALAISE [None]
  - NAUSEA [None]
  - GASTROINTESTINAL DISORDER [None]
  - DRUG ADMINISTRATION ERROR [None]
  - INSOMNIA [None]
  - ABDOMINAL DISCOMFORT [None]
  - REGURGITATION [None]
  - ABDOMINAL PAIN UPPER [None]
